FAERS Safety Report 12741165 (Version 6)
Quarter: 2019Q3

REPORT INFORMATION
  Report Type: Report from Study
  Country: MX (occurrence: MX)
  Receive Date: 20160914
  Receipt Date: 20190819
  Transmission Date: 20191004
  Serious: Yes (Disabling, Other)
  Sender: FDA-Public Use
  Company Number: PHHY2016MX064134

PATIENT
  Sex: Female
  Weight: 54 kg

DRUGS (6)
  1. TIMOLOL. [Concomitant]
     Active Substance: TIMOLOL
     Indication: GLAUCOMA
     Dosage: 2 DROPS IN EACH EYE, QD
     Route: 047
     Dates: start: 2011
  2. LATANOPROST. [Concomitant]
     Active Substance: LATANOPROST
     Indication: GLAUCOMA
     Dosage: 1 DROP IN RIGHT EYE, QD
     Route: 047
     Dates: start: 2011
  3. GALVUS MET [Suspect]
     Active Substance: METFORMIN HYDROCHLORIDE\VILDAGLIPTIN
     Indication: DIABETES MELLITUS
     Dosage: 1 DF, (METFORMIN 850 MG, VILDAGLIPTIN 50 MG), BID
     Route: 048
     Dates: start: 201511
  4. DIOVAN [Suspect]
     Active Substance: VALSARTAN
     Indication: HYPERTENSION
     Dosage: 80 MG, QD 1 TABLET
     Route: 048
     Dates: start: 201411
  5. ASPIRIN PROTECT [Concomitant]
     Active Substance: ASPIRIN
     Indication: HYPERTENSION
     Dosage: 1 DF, QD, 1 TABLET
     Route: 048
     Dates: start: 201411
  6. GALVUS MET [Suspect]
     Active Substance: METFORMIN HYDROCHLORIDE\VILDAGLIPTIN
     Indication: BLOOD GLUCOSE INCREASED
     Dosage: 2 DF (METFORMIN 850 MG, VILDAGLIPTIN 50 MG), QD
     Route: 048
     Dates: start: 201411, end: 201511

REACTIONS (3)
  - Myocardial infarction [Unknown]
  - Glaucoma [Unknown]
  - Blindness [Not Recovered/Not Resolved]

NARRATIVE: CASE EVENT DATE: 2015
